FAERS Safety Report 6402282-3 (Version None)
Quarter: 2009Q4

REPORT INFORMATION
  Report Type: 
  Country: None (occurrence: None)
  Receive Date: 20091015
  Receipt Date: 20091005
  Transmission Date: 20100525
  Serious: Yes (Other)
  Sender: FDA-Public Use
  Company Number: PHEH2008US06235

PATIENT
  Sex: Female

DRUGS (2)
  1. RECLAST [Suspect]
     Dosage: RECOMMENDED ONCE PER YEAR
     Dates: start: 20080514
  2. RECLAST [Suspect]
     Dosage: UNK
     Dates: start: 20090101

REACTIONS (7)
  - BONE GRAFT [None]
  - DENTAL IMPLANTATION [None]
  - ENDODONTIC PROCEDURE [None]
  - GINGIVAL SWELLING [None]
  - ORAL BACTERIAL INFECTION [None]
  - TOOTH EXTRACTION [None]
  - TOOTH INFECTION [None]
